FAERS Safety Report 9479681 (Version 1)
Quarter: 2013Q3

REPORT INFORMATION
  Report Type: Report from Study
  Country: CA (occurrence: CA)
  Receive Date: 20130827
  Receipt Date: 20130827
  Transmission Date: 20140515
  Serious: Yes (Death)
  Sender: FDA-Public Use
  Company Number: PHHY2013CA092500

PATIENT
  Age: 65 Year
  Sex: Male

DRUGS (2)
  1. SANDOSTATIN LAR [Suspect]
     Indication: BRONCHIAL CARCINOMA
     Dosage: 30 MG, EVERY 4 WEEKS
     Route: 030
     Dates: start: 20110502
  2. SANDOSTATIN LAR [Suspect]
     Dosage: 30 MG, EVERY 4 WEEKS
     Route: 030
     Dates: start: 20130113

REACTIONS (2)
  - Death [Fatal]
  - Inappropriate schedule of drug administration [Unknown]
